FAERS Safety Report 9538689 (Version 1)
Quarter: 2013Q2

REPORT INFORMATION
  Report Type: Spontaneous
  Country: US (occurrence: None)
  Receive Date: 20130517
  Receipt Date: 20130517
  Transmission Date: 20140414
  Serious: No
  Sender: FDA-Public Use
  Company Number: 1000043871

PATIENT
  Age: 62 Year
  Sex: Female

DRUGS (11)
  1. VIIBRYD (VILAZODONE HYDROCHLORIDE) (10 MILLIGRAM, TABLETS) [Suspect]
     Indication: DEPRESSION
     Dosage: 10 MG (10 MG, 1 IN 1 D), ORAL
     Route: 048
     Dates: start: 201303, end: 201303
  2. ATENOLOL (ATENOLOL) (ATENOLOL) [Concomitant]
  3. SIMVASTATIN (SIMVASTATIN) (SIMVASTATIN) [Concomitant]
  4. ISOSORBIDE (ISOSORBIDE) (ISOSORBIDE) [Concomitant]
  5. METHYLPHENIDATE (METHYLPHENIDATE) (METHYLPHENIDATE) [Concomitant]
  6. METFORMIN (METFORMIN) (METFORMIN) [Concomitant]
  7. DIGOXIN (DIGOXIN) (DIGOXIN) [Concomitant]
  8. BACLOFEN (BACLOFEN) (BACLOFEN) [Concomitant]
  9. VICTOZA (LIRAGLUTIDE) (LIRAGLUTIDE) [Concomitant]
  10. AMLODIPINE (AMLODIPINE) (AMLODIPINE) [Concomitant]
  11. DICLOFENAC (DICLOFENAC) (DICLOFENAC) [Concomitant]

REACTIONS (1)
  - Flat affect [None]
